FAERS Safety Report 11505011 (Version 1)
Quarter: 2015Q3

REPORT INFORMATION
  Report Type: Spontaneous
  Country: GB (occurrence: GB)
  Receive Date: 20150915
  Receipt Date: 20150915
  Transmission Date: 20151125
  Serious: Yes (Hospitalization)
  Sender: FDA-Public Use
  Company Number: GB-ACCORD-033552

PATIENT
  Age: 71 Year
  Sex: Male

DRUGS (13)
  1. TRIMETHOPRIM/TRIMETHOPRIM LACTATE/TRIMETHOPRIM SULFATE [Interacting]
     Active Substance: TRIMETHOPRIM
     Indication: URINARY TRACT INFECTION
     Route: 048
     Dates: start: 20121010, end: 20121014
  2. ACETYLSALICYLIC ACID [Concomitant]
     Active Substance: ASPIRIN
  3. OMEPRAZOLE. [Concomitant]
     Active Substance: OMEPRAZOLE
  4. METHOTREXATE [Suspect]
     Active Substance: METHOTREXATE
     Indication: PRODUCT USED FOR UNKNOWN INDICATION
  5. SPIRONOLACTONE. [Concomitant]
     Active Substance: SPIRONOLACTONE
  6. TAMSULOSIN/TAMSULOSIN HYDROCHLORIDE [Concomitant]
  7. PERINDOPRIL/PERINDOPRIL ERBUMINE [Concomitant]
  8. SOLIFENACIN/SOLIFENACIN SUCCINATE [Concomitant]
  9. ADCAL-D3 [Concomitant]
     Active Substance: CALCIUM CARBONATE\CHOLECALCIFEROL
  10. ALENDRONIC ACID [Concomitant]
     Active Substance: ALENDRONIC ACID
  11. BUMETANIDE. [Concomitant]
     Active Substance: BUMETANIDE
  12. BISOPROLOL [Concomitant]
     Active Substance: BISOPROLOL
  13. CIPROFLOXACIN/CIPROFLOXACIN HYDROCHLORIDE/CIPROFLOXACIN LACTATE [Interacting]
     Active Substance: CIPROFLOXACIN
     Indication: URINARY TRACT INFECTION
     Route: 048
     Dates: start: 20121020, end: 20121026

REACTIONS (3)
  - Labelled drug-drug interaction medication error [Unknown]
  - Pancytopenia [Recovered/Resolved]
  - Drug interaction [Unknown]
